FAERS Safety Report 16413702 (Version 1)
Quarter: 2019Q2

REPORT INFORMATION
  Report Type: Spontaneous
  Country: US (occurrence: US)
  Receive Date: 20190611
  Receipt Date: 20190611
  Transmission Date: 20190711
  Serious: No
  Sender: FDA-Public Use
  Company Number: US-ELI_LILLY_AND_COMPANY-US201906001581

PATIENT

DRUGS (1)
  1. TRULICITY [Suspect]
     Active Substance: DULAGLUTIDE
     Indication: PRODUCT USED FOR UNKNOWN INDICATION
     Dosage: UNK UNK, UNKNOWN
     Route: 065
     Dates: start: 201903

REACTIONS (8)
  - Fatigue [Unknown]
  - Abdominal pain upper [Unknown]
  - Skin odour abnormal [Unknown]
  - Eructation [Unknown]
  - Diarrhoea [Unknown]
  - Vomiting [Unknown]
  - Tremor [Unknown]
  - Nausea [Unknown]
